FAERS Safety Report 15138482 (Version 1)
Quarter: 2018Q3

REPORT INFORMATION
  Report Type: Spontaneous
  Country: DE (occurrence: DE)
  Receive Date: 20180713
  Receipt Date: 20180713
  Transmission Date: 20181010
  Serious: Yes (Other)
  Sender: FDA-Public Use
  Company Number: DE-TEVA-2018-DE-923964

PATIENT
  Age: 31 Year
  Sex: Female
  Weight: 85 kg

DRUGS (2)
  1. RISPERIDONE. [Suspect]
     Active Substance: RISPERIDONE
     Indication: SCHIZOPHRENIA
     Dosage: 6 [MG/D ]/ INITIAL 2X2 MG/D, DOSAGE INCREASE TO 3X2 MG/D FROM WEEK 28+5
     Route: 030
     Dates: start: 20170712, end: 20180224
  2. TREVICTA [Concomitant]
     Active Substance: PALIPERIDONE PALMITATE
     Indication: SCHIZOPHRENIA
     Dosage: 263 [MG/12WK ]/ LAST INJECTION 7 WEEKS BEFORE CONCEPTION
     Route: 030

REACTIONS (2)
  - Gestational diabetes [Recovered/Resolved]
  - Exposure during pregnancy [Unknown]
